FAERS Safety Report 16579153 (Version 1)
Quarter: 2019Q3

REPORT INFORMATION
  Report Type: Spontaneous
  Country: JP (occurrence: JP)
  Receive Date: 20190716
  Receipt Date: 20190716
  Transmission Date: 20191004
  Serious: Yes (Death, Hospitalization, Other)
  Sender: FDA-Public Use
  Company Number: JP-JNJFOC-20190705839

PATIENT
  Age: 93 Year
  Sex: Female
  Weight: 50 kg

DRUGS (10)
  1. FUROSEMIDE. [Concomitant]
     Active Substance: FUROSEMIDE
  2. BONALON [Concomitant]
     Active Substance: ALENDRONATE SODIUM
  3. XARELTO [Suspect]
     Active Substance: RIVAROXABAN
     Indication: ATRIAL FIBRILLATION
     Dosage: 10 MG, QD
     Route: 048
     Dates: start: 20140829, end: 20190623
  4. PRAVASTATIN. [Concomitant]
     Active Substance: PRAVASTATIN
  5. CALONAL [Concomitant]
     Active Substance: ACETAMINOPHEN
  6. CARVEDILOL. [Concomitant]
     Active Substance: CARVEDILOL
  7. TOLVAPTAN [Concomitant]
     Active Substance: TOLVAPTAN
     Dosage: SAMSCA
  8. DIART [Concomitant]
     Active Substance: AZOSEMIDE
  9. ESOMEPRAZOLE. [Concomitant]
     Active Substance: ESOMEPRAZOLE MAGNESIUM
  10. DOBUTAMINE [Concomitant]
     Active Substance: DOBUTAMINE HYDROCHLORIDE

REACTIONS (6)
  - Cardiac failure [Unknown]
  - Cheyne-Stokes respiration [Unknown]
  - Cerebral haemorrhage [Fatal]
  - Depressed level of consciousness [Unknown]
  - Subdural haemorrhage [Fatal]
  - Disuse syndrome [Unknown]

NARRATIVE: CASE EVENT DATE: 20180508
